FAERS Safety Report 5385367-2 (Version None)
Quarter: 2007Q3

REPORT INFORMATION
  Report Type: 
  Country: None (occurrence: None)
  Receive Date: 20070709
  Receipt Date: 20070627
  Transmission Date: 20080115
  Serious: Yes (Death)
  Sender: FDA-Public Use
  Company Number: 2007-02077

PATIENT
  Age: 61 Year
  Sex: Male
  Weight: 64 kg

DRUGS (3)
  1. VELCADE [Suspect]
     Indication: MULTIPLE MYELOMA
     Dosage: 1.30 MG/M2, INTRAVENOUS
     Route: 042
     Dates: start: 20070212, end: 20070222
  2. DEXAMETHASONE 0.5MG TAB [Concomitant]
  3. STILLEN [Concomitant]

REACTIONS (2)
  - MALIGNANT NEOPLASM PROGRESSION [None]
  - MULTIPLE MYELOMA [None]
